FAERS Safety Report 9947146 (Version 1)
Quarter: 2014Q1

REPORT INFORMATION
  Report Type: Report from Study
  Country: US (occurrence: US)
  Receive Date: 20140303
  Receipt Date: 20140303
  Transmission Date: 20141002
  Serious: No
  Sender: FDA-Public Use
  Company Number: US-ABBVIE-13P-163-1064789-00

PATIENT
  Sex: Female

DRUGS (7)
  1. HUMIRA [Suspect]
     Indication: CROHN^S DISEASE
     Route: 058
     Dates: start: 201301
  2. HUMIRA [Suspect]
     Indication: ARTHRITIS
  3. RELPAX [Concomitant]
     Indication: PRODUCT USED FOR UNKNOWN INDICATION
  4. VERAPAMIL [Concomitant]
     Indication: PRODUCT USED FOR UNKNOWN INDICATION
  5. PRILOSEC OTC [Concomitant]
     Indication: PRODUCT USED FOR UNKNOWN INDICATION
  6. EQL FISH OIL [Concomitant]
     Indication: PRODUCT USED FOR UNKNOWN INDICATION
  7. LIALDA DR [Concomitant]
     Indication: PRODUCT USED FOR UNKNOWN INDICATION

REACTIONS (2)
  - Fatigue [Recovered/Resolved]
  - Injection site pain [Recovered/Resolved]
